FAERS Safety Report 17343251 (Version 1)
Quarter: 2020Q1

REPORT INFORMATION
  Report Type: Spontaneous
  Country: US (occurrence: US)
  Receive Date: 20200129
  Receipt Date: 20200129
  Transmission Date: 20200409
  Serious: No
  Sender: FDA-Public Use
  Company Number: US-ALLERGAN-1907620US

PATIENT
  Age: 43 Year
  Sex: Male

DRUGS (2)
  1. BOTOX COSMETIC [Suspect]
     Active Substance: ONABOTULINUMTOXINA
     Indication: SKIN WRINKLING
     Dosage: ACTUAL: 20 UNITS TO FOREHEAD (HORIZONTAL LINES) AND 20 UNITS TO GLABELLA (BETWEEN THE EYEBROWS)
     Route: 030
     Dates: start: 20190214, end: 20190214
  2. BOTOX COSMETIC [Suspect]
     Active Substance: ONABOTULINUMTOXINA
     Indication: SKIN WRINKLING

REACTIONS (2)
  - Wrong technique in product usage process [Unknown]
  - Therapeutic response decreased [Unknown]

NARRATIVE: CASE EVENT DATE: 20190214
